FAERS Safety Report 5330562-1 (Version None)
Quarter: 2007Q2

REPORT INFORMATION
  Report Type: 
  Country: None (occurrence: None)
  Receive Date: 20070517
  Receipt Date: 20070507
  Transmission Date: 20071010
  Serious: Yes (Other)
  Sender: FDA-Public Use
  Company Number: 2007314871

PATIENT
  Age: 67 Year
  Sex: Female

DRUGS (2)
  1. ROGAINE [Suspect]
     Dosage: 10-12 THRUSTS DAILY, TOPICAL
     Route: 061
     Dates: start: 20060201
  2. BETA BLOCKING AGENTS (BETA BLOCKING AGENTS) [Concomitant]

REACTIONS (3)
  - ACNE [None]
  - HYPERSENSITIVITY [None]
  - PHOTOSENSITIVITY REACTION [None]
